FAERS Safety Report 24554871 (Version 1)
Quarter: 2024Q4

REPORT INFORMATION
  Report Type: Report from Study
  Country: US (occurrence: US)
  Receive Date: 20241028
  Receipt Date: 20241028
  Transmission Date: 20250115
  Serious: No
  Sender: SANDOZ
  Company Number: US-SANDOZ-SDZ2024US085626

PATIENT
  Age: 15 Year
  Sex: Male

DRUGS (2)
  1. OMNITROPE [Suspect]
     Active Substance: SOMATROPIN
     Indication: Short stature
     Dosage: 2.6 MG, QD
     Route: 058
     Dates: start: 20241003
  2. OMNITROPE [Suspect]
     Active Substance: SOMATROPIN
     Indication: Short stature
     Dosage: 2.6 MG, QD
     Route: 058
     Dates: start: 20241003

REACTIONS (4)
  - Injection site pain [Recovered/Resolved]
  - Wrong technique in device usage process [Unknown]
  - Product knowledge deficit [Unknown]
  - Incorrect dose administered [Unknown]

NARRATIVE: CASE EVENT DATE: 20241003
